FAERS Safety Report 4865989-5 (Version None)
Quarter: 2005Q4

REPORT INFORMATION
  Report Type: 
  Country: None (occurrence: None)
  Receive Date: 20051226
  Receipt Date: 20051215
  Transmission Date: 20060501
  Serious: Yes (Hospitalization)
  Sender: FDA-Public Use
  Company Number: FR-SANOFI-SYNTHELABO-A02200503297

PATIENT
  Age: 92 Year
  Sex: Female
  Weight: 57 kg

DRUGS (10)
  1. STILNOX [Suspect]
     Indication: DRUG USE FOR UNKNOWN INDICATION
     Route: 048
  2. ASPEGIC [Suspect]
     Indication: ISCHAEMIC CARDIOMYOPATHY
     Dosage: DAILY DOSE NOT CLEARLY REPORTED : 100 MG OR 250 MG 1 DF
     Route: 048
     Dates: end: 20051004
  3. NITRODERM [Suspect]
     Indication: ISCHAEMIC CARDIOMYOPATHY
     Route: 062
  4. XANAX [Suspect]
     Indication: DRUG USE FOR UNKNOWN INDICATION
     Route: 048
     Dates: start: 20050101
  5. DEROXAT [Suspect]
     Indication: DEPRESSION
     Dosage: UNK
     Route: 048
     Dates: end: 20050928
  6. COZAAR [Suspect]
     Indication: DRUG USE FOR UNKNOWN INDICATION
     Route: 048
  7. ARIMIDEX [Concomitant]
     Indication: DRUG USE FOR UNKNOWN INDICATION
     Dosage: UNK
     Route: 048
  8. MOVICOL [Concomitant]
     Indication: DRUG USE FOR UNKNOWN INDICATION
     Dosage: UNK
     Route: 048
  9. LARMES ARTIFICIELLES [Concomitant]
     Indication: DRUG USE FOR UNKNOWN INDICATION
     Dosage: UNK
     Route: 047
  10. LASILIX [Concomitant]
     Indication: CARDIAC FAILURE CONGESTIVE
     Dosage: LOW DAILY DOSE NOS
     Route: 065
     Dates: start: 20051001

REACTIONS (1)
  - HYPONATRAEMIA [None]
